FAERS Safety Report 26071391 (Version 1)
Quarter: 2025Q4

REPORT INFORMATION
  Report Type: Spontaneous
  Country: US (occurrence: US)
  Receive Date: 20251120
  Receipt Date: 20251120
  Transmission Date: 20260119
  Serious: No
  Sender: SEPTODONT
  Company Number: US-SEPTODONT-2025019972

PATIENT
  Age: 53 Year
  Sex: Female

DRUGS (2)
  1. EPINEPHRINE BITARTRATE\LIDOCAINE HYDROCHLORIDE [Suspect]
     Active Substance: EPINEPHRINE BITARTRATE\LIDOCAINE HYDROCHLORIDE
     Indication: Dental local anaesthesia
     Dosage: 1 CARPULES OF 1.7 ML.
     Route: 004
     Dates: start: 20250826, end: 20250826
  2. 4% articaine w/ 1:100,000 epi [Concomitant]
     Indication: Local anaesthesia
     Dosage: 4 CARPULES.
     Route: 004
     Dates: start: 20250826, end: 20250826

REACTIONS (1)
  - Drug ineffective [Unknown]

NARRATIVE: CASE EVENT DATE: 20250826
